FAERS Safety Report 17734303 (Version 1)
Quarter: 2020Q2

REPORT INFORMATION
  Report Type: Spontaneous
  Country: US (occurrence: US)
  Receive Date: 20200501
  Receipt Date: 20200501
  Transmission Date: 20200714
  Serious: Yes (Other)
  Sender: FDA-Public Use
  Company Number: US-GW PHARMA-202004USGW01581

PATIENT

DRUGS (9)
  1. EPIDIOLEX [Suspect]
     Active Substance: CANNABIDIOL
     Indication: EPILEPSY
     Dosage: UNKNOWN DOSE
     Route: 048
     Dates: start: 20181221, end: 201907
  2. ONFI [Suspect]
     Active Substance: CLOBAZAM
     Dosage: DOSE REDUCED
     Route: 065
  3. LAMICTAL [Concomitant]
     Active Substance: LAMOTRIGINE
     Indication: EPILEPSY
     Dosage: 1250 MILLIGRAM, QD (500MG AM, 750MG PM)
     Route: 065
     Dates: start: 20161014
  4. DEPO-PROVERA [Concomitant]
     Active Substance: MEDROXYPROGESTERONE ACETATE
     Indication: CONTRACEPTION
     Dosage: UNK
     Route: 065
  5. FYCOMPA [Suspect]
     Active Substance: PERAMPANEL
     Indication: PRODUCT USED FOR UNKNOWN INDICATION
     Dosage: UNK
     Route: 065
  6. FYCOMPA [Suspect]
     Active Substance: PERAMPANEL
     Dosage: DOSE DECREASED
     Route: 065
     Dates: end: 201911
  7. SIMVASTATIN. [Concomitant]
     Active Substance: SIMVASTATIN
     Indication: BLOOD CHOLESTEROL
     Dosage: UNK
     Route: 065
  8. ONFI [Suspect]
     Active Substance: CLOBAZAM
     Indication: EPILEPSY
     Dosage: UNKNOWN DOSE
     Route: 065
     Dates: start: 20150107
  9. POTASSIUM CHLORIDE. [Concomitant]
     Active Substance: POTASSIUM CHLORIDE
     Indication: SUPPLEMENTATION THERAPY
     Dosage: UNK
     Route: 065

REACTIONS (5)
  - Rash [Unknown]
  - Emotional disorder [Unknown]
  - Hallucinations, mixed [Unknown]
  - Cognitive disorder [Unknown]
  - Psychotic disorder [Unknown]

NARRATIVE: CASE EVENT DATE: 2019
